FAERS Safety Report 20648580 (Version 2)
Quarter: 2022Q3

REPORT INFORMATION
  Report Type: Spontaneous
  Country: AU (occurrence: AU)
  Receive Date: 20220329
  Receipt Date: 20220711
  Transmission Date: 20221027
  Serious: Yes (Hospitalization)
  Sender: FDA-Public Use
  Company Number: AU-TASMAN PHARMA, INC.-2022TSM00049

PATIENT
  Sex: Male

DRUGS (2)
  1. CLOZAPINE [Suspect]
     Active Substance: CLOZAPINE
     Dosage: 150 MG
     Dates: start: 20220217, end: 20220225
  2. CLOZAPINE [Suspect]
     Active Substance: CLOZAPINE
     Dosage: 6.25 MG
     Dates: start: 202203, end: 20220325

REACTIONS (2)
  - Hospitalisation [Unknown]
  - Treatment noncompliance [Not Recovered/Not Resolved]

NARRATIVE: CASE EVENT DATE: 20220217
